FAERS Safety Report 6443380-8 (Version None)
Quarter: 2009Q4

REPORT INFORMATION
  Report Type: 
  Country: None (occurrence: None)
  Receive Date: 20091117
  Receipt Date: 20091116
  Transmission Date: 20100525
  Serious: Yes (Other)
  Sender: FDA-Public Use
  Company Number: US-ROXANE LABORATORIES, INC.-2009-RO-01176RO

PATIENT

DRUGS (2)
  1. FUROSEMIDE [Suspect]
  2. CARVEDILOL [Suspect]

REACTIONS (1)
  - MYOCARDIAL INFARCTION [None]
